FAERS Safety Report 8740532 (Version 2)
Quarter: 2012Q4

REPORT INFORMATION
  Report Type: 
  Country: US (occurrence: US)
  Receive Date: 20120823
  Receipt Date: 20121018
  Transmission Date: 20130627
  Serious: No
  Sender: FDA-Public Use
  Company Number: US-009507513-1208USA007068

PATIENT
  Sex: Female

DRUGS (1)
  1. NEXPLANON [Suspect]
     Indication: CONTRACEPTION
     Dosage: UNK
     Route: 059
     Dates: start: 201207, end: 20121004

REACTIONS (2)
  - Medical device complication [Unknown]
  - No adverse event [Unknown]
